FAERS Safety Report 12978021 (Version 1)
Quarter: 2016Q4

REPORT INFORMATION
  Report Type: Spontaneous
  Country: US (occurrence: US)
  Receive Date: 20161123
  Receipt Date: 20161123
  Transmission Date: 20170207
  Serious: Yes (Other)
  Sender: FDA-Public Use
  Company Number: None

PATIENT
  Age: 33 Year
  Sex: Female
  Weight: 72.64 kg

DRUGS (5)
  1. DILANTIN [Concomitant]
     Active Substance: PHENYTOIN
  2. GENERIC KEPPRA [Suspect]
     Active Substance: LEVETIRACETAM
     Indication: SEIZURE
  3. TEGRETOL [Concomitant]
     Active Substance: CARBAMAZEPINE
  4. BANZAL [Concomitant]
  5. VIMPAT [Concomitant]
     Active Substance: LACOSAMIDE

REACTIONS (2)
  - Product substitution issue [None]
  - Seizure [None]
